FAERS Safety Report 9243439 (Version 1)
Quarter: 2013Q2

REPORT INFORMATION
  Report Type: Spontaneous
  Country: CA (occurrence: CA)
  Receive Date: 20130421
  Receipt Date: 20130421
  Transmission Date: 20140414
  Serious: Yes (Hospitalization)
  Sender: FDA-Public Use
  Company Number: CA-AMGEN-CANSP2013027339

PATIENT
  Age: 67 Year
  Sex: Male
  Weight: 72 kg

DRUGS (7)
  1. NEUPOGEN [Suspect]
     Indication: PRODUCT USED FOR UNKNOWN INDICATION
     Dosage: 300 MUG, QD 18 DAYS
     Route: 058
  2. ASAPHEN [Concomitant]
     Dosage: UNK
  3. CRESTOR [Concomitant]
     Dosage: UNK
  4. EPREX [Concomitant]
     Dosage: UNK
     Route: 042
  5. PANTOLOC                           /01263204/ [Concomitant]
     Dosage: UNK
  6. TIAZAC                             /00489702/ [Concomitant]
     Dosage: UNK
  7. VIDAZA [Concomitant]
     Dosage: UNK
     Route: 058

REACTIONS (4)
  - Haemoglobin decreased [Unknown]
  - Platelet count decreased [Unknown]
  - Pyrexia [Unknown]
  - Acute febrile neutrophilic dermatosis [Unknown]
